FAERS Safety Report 8963857 (Version 2)
Quarter: 2013Q1

REPORT INFORMATION
  Report Type: Spontaneous
  Country: US (occurrence: US)
  Receive Date: 20121214
  Receipt Date: 20130108
  Transmission Date: 20140127
  Serious: No
  Sender: FDA-Public Use
  Company Number: US-009507513-1212USA004902

PATIENT
  Sex: Male

DRUGS (11)
  1. VICTRELIS [Suspect]
     Indication: CHRONIC HEPATITIS C
     Dosage: 800 MG, TID
     Route: 048
     Dates: start: 20121025
  2. RIBASPHERE [Suspect]
     Dosage: UNK
     Dates: start: 201210
  3. PEGASYS [Suspect]
     Dosage: UNK
     Dates: start: 201210
  4. CIALIS [Concomitant]
  5. JANUMET [Concomitant]
  6. AMARYL [Concomitant]
  7. ZOLOFT [Concomitant]
  8. TEKTURNA [Concomitant]
  9. VALTREX [Concomitant]
  10. NEXIUM [Concomitant]
  11. PROCRIT [Concomitant]
     Dosage: UNK
     Dates: start: 20121126

REACTIONS (4)
  - Influenza like illness [Unknown]
  - Pruritus [Unknown]
  - Cough [Unknown]
  - Fatigue [Unknown]
